FAERS Safety Report 5367530-X (Version None)
Quarter: 2007Q2

REPORT INFORMATION
  Report Type: 
  Country: None (occurrence: None)
  Receive Date: 20070622
  Receipt Date: 20061206
  Transmission Date: 20071010
  Serious: No
  Sender: FDA-Public Use
  Company Number: US-ASTRAZENECA-2006UW27159

PATIENT
  Age: 50 Year
  Sex: Female
  Weight: 49 kg

DRUGS (3)
  1. PULMICORT [Suspect]
     Indication: BRONCHIECTASIS
     Route: 055
  2. CIPRO [Concomitant]
  3. CLINDAMYCIN HCL [Concomitant]

REACTIONS (2)
  - CHEST DISCOMFORT [None]
  - INFECTION [None]
